FAERS Safety Report 15963768 (Version 2)
Quarter: 2019Q4

REPORT INFORMATION
  Report Type: Spontaneous
  Country: US (occurrence: US)
  Receive Date: 20190214
  Receipt Date: 20191212
  Transmission Date: 20200122
  Serious: Yes (Hospitalization, Other)
  Sender: FDA-Public Use
  Company Number: US-MYLANLABS-2019M1013451

PATIENT
  Age: 60 Year
  Sex: Female

DRUGS (2)
  1. MIDODRINE [Suspect]
     Active Substance: MIDODRINE
     Indication: ORTHOSTATIC HYPOTENSION
     Dosage: 2.5MG 3 TIMES A DAY AND TITRATED TO 20MG 3 TIMES A DAY
     Route: 065
  2. LOSARTAN. [Concomitant]
     Active Substance: LOSARTAN
     Indication: SUPINE HYPERTENSION
     Dosage: 50 MG AT SLEEPING TIME AND TITRATED..
     Route: 065

REACTIONS (4)
  - Syncope [Recovered/Resolved]
  - Haemorrhagic stroke [Recovered/Resolved]
  - Supine hypertension [Recovered/Resolved]
  - Condition aggravated [Recovered/Resolved]
